FAERS Safety Report 5806470-6 (Version None)
Quarter: 2008Q3

REPORT INFORMATION
  Report Type: 
  Country: None (occurrence: None)
  Receive Date: 20080710
  Receipt Date: 20070711
  Transmission Date: 20090109
  Serious: Yes (Hospitalization, Other)
  Sender: FDA-Public Use
  Company Number: US-BAYER-US-2007-026049

PATIENT
  Age: 44 Year
  Sex: Female

DRUGS (2)
  1. CAMPATH [Suspect]
     Indication: LYMPHOMA
     Dates: end: 20070706
  2. CLOFARABINE [Suspect]
     Dates: start: 20070423, end: 20070516

REACTIONS (4)
  - CANDIDIASIS [None]
  - CYTOMEGALOVIRUS VIRAEMIA [None]
  - DIARRHOEA [None]
  - FEBRILE NEUTROPENIA [None]
